FAERS Safety Report 23735464 (Version 1)
Quarter: 2024Q2

REPORT INFORMATION
  Report Type: Spontaneous
  Country: AU (occurrence: AU)
  Receive Date: 20240412
  Receipt Date: 20240412
  Transmission Date: 20240716
  Serious: Yes (Hospitalization, Other)
  Sender: FDA-Public Use
  Company Number: AU-FDC-2024AULIT00300

PATIENT
  Sex: Female

DRUGS (10)
  1. CIPROFLOXACIN [Suspect]
     Active Substance: CIPROFLOXACIN
     Indication: Appendicitis
     Route: 065
     Dates: start: 2017
  2. AMOXICILLIN [Suspect]
     Active Substance: AMOXICILLIN
     Indication: Appendicitis
     Route: 065
     Dates: start: 2017
  3. METRONIDAZOLE [Suspect]
     Active Substance: METRONIDAZOLE
     Indication: Appendicitis
     Route: 065
     Dates: start: 2017
  4. GENTAMICIN [Suspect]
     Active Substance: GENTAMICIN
     Indication: Appendicitis
     Route: 065
     Dates: start: 2017
  5. CEPHALEXIN [Suspect]
     Active Substance: CEPHALEXIN
     Indication: Appendicitis
     Route: 065
     Dates: start: 2017
  6. PREDNISOLONE [Concomitant]
     Active Substance: PREDNISOLONE
     Indication: Lupus nephritis
     Route: 065
  7. PREDNISOLONE [Concomitant]
     Active Substance: PREDNISOLONE
     Route: 065
  8. AZATHIOPRINE [Concomitant]
     Active Substance: AZATHIOPRINE
     Indication: Lupus nephritis
     Route: 065
  9. HYDROXYCHLOROQUINE [Concomitant]
     Active Substance: HYDROXYCHLOROQUINE
     Indication: Lupus nephritis
     Route: 065
  10. PERINDOPRIL [Concomitant]
     Active Substance: PERINDOPRIL
     Indication: Product used for unknown indication
     Route: 065

REACTIONS (3)
  - Renal tubular necrosis [Unknown]
  - Acute kidney injury [Unknown]
  - Product use in unapproved indication [Unknown]

NARRATIVE: CASE EVENT DATE: 20170101
